FAERS Safety Report 17550107 (Version 1)
Quarter: 2020Q1

REPORT INFORMATION
  Report Type: Spontaneous
  Country: ES (occurrence: ES)
  Receive Date: 20200317
  Receipt Date: 20200317
  Transmission Date: 20200409
  Serious: Yes (Other)
  Sender: FDA-Public Use
  Company Number: ES-PFIZER INC-2020108237

PATIENT
  Age: 71 Year
  Sex: Female

DRUGS (13)
  1. AMITIPTYLINE [Concomitant]
     Active Substance: AMITRIPTYLINE
     Indication: TENSION HEADACHE
     Dosage: 10 MG, 1X/DAY
     Route: 048
     Dates: start: 20160629
  2. LYRICA [Concomitant]
     Active Substance: PREGABALIN
     Indication: INTERVERTEBRAL DISC DISORDER
     Dosage: 75 MG, 2X/DAY
     Route: 048
     Dates: start: 20150610
  3. TOVIAZ [Concomitant]
     Active Substance: FESOTERODINE FUMARATE
     Indication: URINARY INCONTINENCE
     Dosage: 4 MG, 1X/DAY
     Route: 048
     Dates: start: 20161112
  4. AZITHROMYCIN ANHYDROUS. [Concomitant]
     Active Substance: AZITHROMYCIN ANHYDROUS
     Indication: BRONCHIECTASIS
     Dosage: 250 MG, EVERY 48 HOURS
     Route: 048
     Dates: start: 20190416
  5. ATROVENT [Concomitant]
     Active Substance: IPRATROPIUM BROMIDE
     Indication: ASTHMA
     Dosage: 60 UG, 2X/DAY
     Route: 055
     Dates: start: 20190423
  6. METHYLPREDNISOLONE SODIUM SUCCINATE. [Suspect]
     Active Substance: METHYLPREDNISOLONE SODIUM SUCCINATE
     Indication: ASTHMA
     Dosage: 20 MG, 3X/DAY
     Route: 042
     Dates: start: 20190527, end: 20190530
  7. LORAZEPAM CINFA [Concomitant]
     Active Substance: LORAZEPAM
     Dosage: 0.5 MG, 1X/DAY
     Route: 048
     Dates: start: 20180222
  8. OMEPRAZOL [Concomitant]
     Active Substance: OMEPRAZOLE
     Dosage: 20 MG, 3X/DAY
     Route: 048
     Dates: start: 20151230
  9. FORMODUAL NEXTHALER [Concomitant]
     Indication: ASTHMA
     Dosage: 2 DF, 2X/DAY
     Route: 055
     Dates: start: 20190415
  10. OXYCODONE/NALOXONE [Concomitant]
     Active Substance: NALOXONE HYDROCHLORIDE\OXYCODONE HYDROCHLORIDE
     Indication: INTERVERTEBRAL DISC DISORDER
     Dosage: 20 MG, 2X/DAY
     Route: 048
     Dates: start: 20151106
  11. DEMILOS [Concomitant]
     Active Substance: CALCIUM CARBONATE\CHOLECALCIFEROL
     Indication: INTERVERTEBRAL DISC DISORDER
     Dosage: 1 DF, 1X/DAY 600MG/1000UI
     Route: 048
     Dates: start: 20140226
  12. OBALIX [Concomitant]
     Indication: HYPERSENSITIVITY
     Dosage: 20 MG, 1X/DAY
     Route: 048
     Dates: start: 20160413
  13. METAMIZOLE [Concomitant]
     Active Substance: METAMIZOLE
     Indication: NEURALGIA
     Dosage: 500 MG, 3X/DAY
     Route: 048
     Dates: start: 20170721

REACTIONS (1)
  - Hyperglycaemia [Recovered/Resolved]

NARRATIVE: CASE EVENT DATE: 20190528
